FAERS Safety Report 8189732-X (Version None)
Quarter: 2012Q1

REPORT INFORMATION
  Report Type: 
  Country: None (occurrence: None)
  Receive Date: 20120221
  Receipt Date: 20120111
  Transmission Date: 20120608
  Serious: No
  Sender: FDA-Public Use
  Company Number: 1000027112

PATIENT
  Age: 25 Year
  Sex: Male

DRUGS (1)
  1. VIIBRYD [Suspect]

REACTIONS (4)
  - ENERGY INCREASED [None]
  - MUSCLE TIGHTNESS [None]
  - INSOMNIA [None]
  - PANIC DISORDER [None]
